FAERS Safety Report 9184756 (Version 1)
Quarter: 2013Q1

REPORT INFORMATION
  Report Type: Report from Study
  Country: DE (occurrence: DE)
  Receive Date: 20130325
  Receipt Date: 20130325
  Transmission Date: 20140127
  Serious: Yes (Hospitalization)
  Sender: FDA-Public Use
  Company Number: DE-ROCHE-1075670

PATIENT
  Age: 57 Year
  Sex: Female
  Weight: 50 kg

DRUGS (5)
  1. BEVACIZUMAB [Suspect]
     Indication: OVARIAN CANCER
     Dosage: LAST DOSE PRIOR TO SAE: 25/MAY/2012
     Route: 042
     Dates: start: 20120525
  2. CARBOPLATIN [Suspect]
     Indication: OVARIAN CANCER
     Dosage: LAST DOSE PRIOR TO THE EVENT : 07/SEP/2012
     Route: 042
     Dates: start: 20120525
  3. PACLITAXEL [Suspect]
     Indication: OVARIAN CANCER
     Dosage: DATE OF THE ALST DOSE PRIOR TO THE SAE: 07/SEP/2012
     Route: 042
     Dates: start: 20120525
  4. L-THYROXIN [Concomitant]
     Indication: HYPOTHYROIDISM
     Dosage: LAST DOSE: 01/JUN/2012
     Route: 065
     Dates: start: 20120512, end: 20130314
  5. CHOLESTYRAMINE [Concomitant]
     Indication: DIARRHOEA
     Route: 048
     Dates: start: 20120904

REACTIONS (1)
  - Supraventricular tachycardia [Recovered/Resolved]
